FAERS Safety Report 4349261-8 (Version None)
Quarter: 2004Q2

REPORT INFORMATION
  Report Type: 
  Country: None (occurrence: None)
  Receive Date: 20040427
  Receipt Date: 20030310
  Transmission Date: 20050107
  Serious: No
  Sender: FDA-Public Use
  Company Number: 000478

PATIENT
  Age: 73 Year
  Sex: Male

DRUGS (5)
  1. ZEVALIN [Suspect]
     Indication: NON-HODGKIN'S LYMPHOMA
     Dosage: SINGLE, RITUXAN DOSE 1, INTRAVENOUS; SINGLE, RITUXAN DOSE 2, INTRAVENOUS
     Route: 042
     Dates: start: 20030301, end: 20030301
  2. ZEVALIN [Suspect]
     Indication: NON-HODGKIN'S LYMPHOMA
     Dosage: SINGLE, RITUXAN DOSE 1, INTRAVENOUS; SINGLE, RITUXAN DOSE 2, INTRAVENOUS
     Route: 042
     Dates: start: 20030301, end: 20030301
  3. ZEVALIN [Suspect]
     Dosage: SINGLE, IN-[111] ZEVALIN, INTRAVNEOUS; SINGLE, RITUXAN DOSE 3, INTRAVENOUS
     Route: 042
     Dates: start: 20030301, end: 20030301
  4. ZEVALIN [Suspect]
     Dosage: SINGLE, IN-[111] ZEVALIN, INTRAVNEOUS; SINGLE, RITUXAN DOSE 3, INTRAVENOUS
     Route: 042
     Dates: start: 20030301, end: 20030301
  5. ZEVALIN [Suspect]
     Dosage: SINGLE, Y[90] ZEVALIN, INTRAVENOUS
     Route: 042
     Dates: start: 20030301, end: 20030301

REACTIONS (1)
  - HYPERSENSITIVITY [None]
